FAERS Safety Report 8882761 (Version 2)
Quarter: 2013Q1

REPORT INFORMATION
  Report Type: Not Available
  Country: FR (occurrence: FR)
  Receive Date: 20121105
  Receipt Date: 20130118
  Transmission Date: 20140127
  Serious: Yes (Hospitalization)
  Sender: FDA-Public Use
  Company Number: FR-NAPPMUNDI-GBR-2012-0011918

PATIENT
  Age: 86 Year
  Sex: Female

DRUGS (7)
  1. OXYNORM [Suspect]
     Indication: PRODUCT USED FOR UNKNOWN INDICATION
     Dosage: 1 DF, DAILY
     Route: 048
     Dates: end: 20121001
  2. OXYNORM [Suspect]
     Indication: PRODUCT USED FOR UNKNOWN INDICATION
     Dosage: 2 DF, 3/WEEK
     Route: 048
     Dates: start: 20120928, end: 20121001
  3. LOXAPAC                            /00401801/ [Concomitant]
     Dosage: 5 DROP, BID
  4. TERCIAN                            /00759301/ [Concomitant]
     Dosage: 20 DROP, DAILY
     Dates: start: 20121002
  5. OGAST [Concomitant]
     Dosage: 30 MG, UNK
     Dates: start: 20121002
  6. DOLIPRANE [Concomitant]
     Dosage: 2 DF, TID
  7. MOVICOL                            /01625101/ [Concomitant]
     Route: 048

REACTIONS (5)
  - Overdose [Recovered/Resolved]
  - Hypothermia [Recovering/Resolving]
  - Disturbance in attention [Recovered/Resolved]
  - Vomiting [Recovered/Resolved]
  - Miosis [Recovered/Resolved]
